FAERS Safety Report 12231166 (Version 1)
Quarter: 2016Q2

REPORT INFORMATION
  Report Type: Spontaneous
  Country: IN (occurrence: IN)
  Receive Date: 20160401
  Receipt Date: 20160401
  Transmission Date: 20160815
  Serious: Yes (Death, Other)
  Sender: FDA-Public Use
  Company Number: IN-ASTELLAS-2016US011908

PATIENT
  Age: 60 Year
  Sex: Male

DRUGS (5)
  1. WYSOLONE [Suspect]
     Active Substance: PREDNISOLONE
     Indication: PROPHYLAXIS AGAINST TRANSPLANT REJECTION
     Dosage: UNK MG, UNKNOWN FREQ.
     Route: 048
     Dates: start: 201512
  2. NODOSIS [Suspect]
     Active Substance: SODIUM BICARBONATE
     Indication: METABOLIC ACIDOSIS
     Dosage: UNK MG, UNKNOWN FREQ.
     Route: 048
     Dates: start: 201512
  3. PROGRAF [Suspect]
     Active Substance: TACROLIMUS\TACROLIMUS ANHYDROUS
     Indication: PROPHYLAXIS AGAINST TRANSPLANT REJECTION
     Dosage: UNK MG, UNKNOWN FREQ.
     Route: 048
     Dates: start: 201512
  4. SORAFENIB [Suspect]
     Active Substance: SORAFENIB
     Indication: PRODUCT USED FOR UNKNOWN INDICATION
     Dosage: UNK MG, UNKNOWN FREQ.
     Route: 048
     Dates: start: 201512
  5. PANTOPRAZOLE [Suspect]
     Active Substance: PANTOPRAZOLE SODIUM
     Indication: ANTACID THERAPY
     Dosage: UNK MG, UNKNOWN FREQ.
     Route: 048
     Dates: start: 201512

REACTIONS (4)
  - Cardiac arrest [Fatal]
  - Asthenia [None]
  - Disease recurrence [None]
  - Liver transplant rejection [None]

NARRATIVE: CASE EVENT DATE: 20160326
